FAERS Safety Report 8971668 (Version 2)
Quarter: 2013Q2

REPORT INFORMATION
  Report Type: Report from Study
  Country: US (occurrence: US)
  Receive Date: 20121217
  Receipt Date: 20130624
  Transmission Date: 20140414
  Serious: Yes (Hospitalization)
  Sender: FDA-Public Use
  Company Number: US-JNJFOC-20121206303

PATIENT
  Age: 27 Year
  Sex: Female
  Weight: 59.5 kg

DRUGS (4)
  1. APAP [Suspect]
     Route: 048
  2. APAP [Suspect]
     Indication: PRODUCT USED FOR UNKNOWN INDICATION
     Route: 048
     Dates: start: 20121204
  3. IBUPROFEN [Suspect]
     Indication: PRODUCT USED FOR UNKNOWN INDICATION
     Route: 048
     Dates: start: 20121204
  4. DOXYCYCLINE [Suspect]
     Indication: PRODUCT USED FOR UNKNOWN INDICATION
     Route: 048
     Dates: start: 20121204

REACTIONS (4)
  - Hepatic function abnormal [Recovered/Resolved]
  - Intentional overdose [Recovered/Resolved]
  - Self injurious behaviour [Recovered/Resolved]
  - Vomiting [Recovered/Resolved]
